FAERS Safety Report 18627493 (Version 1)
Quarter: 2020Q4

REPORT INFORMATION
  Report Type: Spontaneous
  Country: BE (occurrence: BE)
  Receive Date: 20201217
  Receipt Date: 20201217
  Transmission Date: 20210114
  Serious: Yes (Life-Threatening, Hospitalization, Other)
  Sender: FDA-Public Use
  Company Number: BE-ALVOGEN-2020-ALVOGEN-115516

PATIENT
  Age: 49 Year
  Sex: Male

DRUGS (1)
  1. DISULFIRAM. [Suspect]
     Active Substance: DISULFIRAM
     Indication: ALCOHOL ABUSE

REACTIONS (4)
  - Depressed level of consciousness [Recovering/Resolving]
  - Erythema [Recovered/Resolved]
  - Alcohol intolerance [Recovering/Resolving]
  - Hypotension [Recovered/Resolved]
